FAERS Safety Report 8844921 (Version 2)
Quarter: 2012Q4

REPORT INFORMATION
  Report Type: 
  Country: GB (occurrence: GB)
  Receive Date: 20121017
  Receipt Date: 20121022
  Transmission Date: 20130627
  Serious: Yes (Other)
  Sender: FDA-Public Use
  Company Number: PHFR2012GB005352

PATIENT
  Age: 32 Year
  Sex: Female

DRUGS (1)
  1. FTY 720 [Suspect]
     Indication: RELAPSING-REMITTING MULTIPLE SCLEROSIS
     Route: 048
     Dates: start: 20120807, end: 20120924

REACTIONS (15)
  - Atrioventricular block second degree [Unknown]
  - Hepatic mass [Unknown]
  - Gamma-glutamyltransferase increased [Unknown]
  - Hepatic enzyme increased [Unknown]
  - Blood alkaline phosphatase increased [Unknown]
  - Blood lactate dehydrogenase increased [Unknown]
  - Blood bilirubin increased [Unknown]
  - Bradycardia [Unknown]
  - Sinus rhythm [Unknown]
  - Abdominal pain [Unknown]
  - Night sweats [Unknown]
  - Swelling [Unknown]
  - Haemoglobin decreased [Unknown]
  - Platelet count increased [Unknown]
  - Weight decreased [Unknown]
